FAERS Safety Report 17899917 (Version 1)
Quarter: 2020Q2

REPORT INFORMATION
  Report Type: Spontaneous
  Country: CA (occurrence: CA)
  Receive Date: 20200616
  Receipt Date: 20200616
  Transmission Date: 20200714
  Serious: Yes (Other)
  Sender: FDA-Public Use
  Company Number: CA-TEVA-2020-CA-1730550

PATIENT
  Age: 70 Year
  Sex: Female

DRUGS (5)
  1. METHOTREXATE. [Suspect]
     Active Substance: METHOTREXATE
     Indication: PRODUCT USED FOR UNKNOWN INDICATION
     Route: 065
  2. MELOXICAM. [Concomitant]
     Active Substance: MELOXICAM
  3. PERINDOPRIL [Concomitant]
     Active Substance: PERINDOPRIL
  4. SUCRALFATE. [Concomitant]
     Active Substance: SUCRALFATE
  5. PANTOLOC[PANTOPRAZOLE] [Concomitant]

REACTIONS (8)
  - Neurological symptom [Unknown]
  - Hypertension [Unknown]
  - Malaise [Unknown]
  - Palpitations [Unknown]
  - Dizziness [Unknown]
  - Visual impairment [Unknown]
  - Gastrointestinal disorder [Unknown]
  - Nausea [Unknown]
